FAERS Safety Report 8391770-9 (Version None)
Quarter: 2012Q1

REPORT INFORMATION
  Report Type: 
  Country: None (occurrence: None)
  Receive Date: 20120323
  Receipt Date: 20110824
  Transmission Date: 20120608
  Serious: Yes (Other)
  Sender: FDA-Public Use
  Company Number: 163-21880-11030031

PATIENT
  Age: 55 Year
  Sex: Male

DRUGS (3)
  1. REVLIMID [Suspect]
     Indication: AMYLOIDOSIS
     Dosage: 15 MG, QD X 21D, PO, 10 MG, QD X 21 DAYS, PO, 5 MG, QD X 21 DAYS, PO
     Route: 048
     Dates: start: 20100921, end: 20101229
  2. REVLIMID [Suspect]
     Indication: AMYLOIDOSIS
     Dosage: 15 MG, QD X 21D, PO, 10 MG, QD X 21 DAYS, PO, 5 MG, QD X 21 DAYS, PO
     Route: 048
     Dates: start: 20110126
  3. REVLIMID [Suspect]
     Indication: AMYLOIDOSIS
     Dosage: 15 MG, QD X 21D, PO, 10 MG, QD X 21 DAYS, PO, 5 MG, QD X 21 DAYS, PO
     Route: 048
     Dates: start: 20110302

REACTIONS (1)
  - NEUTROPENIA [None]
